FAERS Safety Report 12446511 (Version 1)
Quarter: 2016Q2

REPORT INFORMATION
  Report Type: Spontaneous
  Country: US (occurrence: None)
  Receive Date: 20160607
  Receipt Date: 20160607
  Transmission Date: 20160815
  Serious: Yes (Other)
  Sender: FDA-Public Use
  Company Number: None

PATIENT
  Age: 70 Year
  Sex: Female
  Weight: 64.86 kg

DRUGS (4)
  1. ZOMETA [Suspect]
     Active Substance: ZOLEDRONIC ACID
     Indication: BONE CANCER
     Dates: start: 20160602, end: 20160602
  2. OXYCODONE [Concomitant]
     Active Substance: OXYCODONE
  3. VITAMIN D3 WITH CALCIUM [Concomitant]
  4. FASLODEX [Concomitant]
     Active Substance: FULVESTRANT

REACTIONS (1)
  - Back pain [None]

NARRATIVE: CASE EVENT DATE: 20160603
